FAERS Safety Report 7239526-4 (Version None)
Quarter: 2011Q1

REPORT INFORMATION
  Report Type: 
  Country: None (occurrence: None)
  Receive Date: 20110121
  Receipt Date: 20110117
  Transmission Date: 20110831
  Serious: Yes (Hospitalization)
  Sender: FDA-Public Use
  Company Number: IT-MERCK-1101ITA00020

PATIENT
  Sex: Male

DRUGS (2)
  1. VYTORIN [Suspect]
     Indication: HYPERCHOLESTEROLAEMIA
     Route: 048
     Dates: start: 20070101, end: 20070101
  2. WARFARIN SODIUM [Concomitant]
     Indication: THROMBOSIS
     Route: 065

REACTIONS (1)
  - COAGULATION TIME PROLONGED [None]
